FAERS Safety Report 19184988 (Version 1)
Quarter: 2021Q2

REPORT INFORMATION
  Report Type: Spontaneous
  Country: US (occurrence: US)
  Receive Date: 20210426
  Receipt Date: 20210426
  Transmission Date: 20210717
  Serious: Yes (Hospitalization)
  Sender: FDA-Public Use
  Company Number: None

PATIENT
  Age: 31 Year
  Sex: Male

DRUGS (8)
  1. ASPIRIN. [Concomitant]
     Active Substance: ASPIRIN
  2. VERAPAMIL [Concomitant]
     Active Substance: VERAPAMIL HYDROCHLORIDE
  3. METOPROLOL. [Concomitant]
     Active Substance: METOPROLOL
  4. CASIRIVIMAB/IMDEVIMAB [Suspect]
     Active Substance: CASIRIVIMAB\IMDEVIMAB
     Indication: COVID-19
     Route: 042
     Dates: start: 20210330, end: 20210330
  5. INSULIN LISPRO [Concomitant]
     Active Substance: INSULIN LISPRO
  6. ATORVASTATIN [Concomitant]
     Active Substance: ATORVASTATIN
  7. PANTOPRAZOLE [Concomitant]
     Active Substance: PANTOPRAZOLE
  8. INSULIN GLARGINE [Concomitant]
     Active Substance: INSULIN GLARGINE

REACTIONS (15)
  - Gait inability [None]
  - Hypoxia [None]
  - Blood bicarbonate decreased [None]
  - Hyponatraemia [None]
  - Pulmonary oedema [None]
  - Muscular weakness [None]
  - Myocarditis [None]
  - Cardiac failure [None]
  - Syringomyelia [None]
  - Guillain-Barre syndrome [None]
  - Blood glucose increased [None]
  - Haemoglobin decreased [None]
  - Blood urea decreased [None]
  - Blood creatinine increased [None]
  - Cardiomyopathy [None]

NARRATIVE: CASE EVENT DATE: 20210404
